FAERS Safety Report 6568927-2 (Version None)
Quarter: 2010Q1

REPORT INFORMATION
  Report Type: 
  Country: None (occurrence: None)
  Receive Date: 20100201
  Receipt Date: 20100201
  Transmission Date: 20100710
  Serious: Yes (Hospitalization)
  Sender: FDA-Public Use
  Company Number: None

PATIENT
  Age: 73 Year
  Sex: Male
  Weight: 74.3899 kg

DRUGS (2)
  1. BETAPACE [Suspect]
     Dosage: 80 MG 2X DAY; GAVE 120 MG ON 7/14/09 AT 0937
     Dates: start: 20090713
  2. BETAPACE [Suspect]
     Dosage: 80 MG 2X DAY; GAVE 120 MG ON 7/14/09 AT 0937
     Dates: start: 20090713

REACTIONS (11)
  - COMMUNICATION DISORDER [None]
  - CONFUSIONAL STATE [None]
  - DIZZINESS [None]
  - DYSSTASIA [None]
  - FATIGUE [None]
  - HEMIPARESIS [None]
  - HYPERHIDROSIS [None]
  - INCOHERENT [None]
  - MALAISE [None]
  - MOVEMENT DISORDER [None]
  - VOMITING [None]
